FAERS Safety Report 17915269 (Version 1)
Quarter: 2020Q2

REPORT INFORMATION
  Report Type: Spontaneous
  Country: US (occurrence: US)
  Receive Date: 20200619
  Receipt Date: 20200619
  Transmission Date: 20200714
  Serious: No
  Sender: FDA-Public Use
  Company Number: US-ITALFARMACO SPA-2086109

PATIENT
  Age: 71 Year
  Sex: Male

DRUGS (12)
  1. GUAIFENESIN. [Concomitant]
     Active Substance: GUAIFENESIN
  2. TAMSULOSIN HYDROCHLORIDE. [Concomitant]
     Active Substance: TAMSULOSIN HYDROCHLORIDE
  3. RADICAVA [Concomitant]
     Active Substance: EDARAVONE
  4. DOCUSATE [Concomitant]
     Active Substance: DOCUSATE
  5. OCUVITE [Concomitant]
     Active Substance: VITAMINS
  6. TIGLUTIK [Suspect]
     Active Substance: RILUZOLE
     Indication: AMYOTROPHIC LATERAL SCLEROSIS
     Route: 048
     Dates: start: 20200423
  7. GLYCOPYRROLATE. [Concomitant]
     Active Substance: GLYCOPYRROLATE
  8. TENOFOVIR DISOPROXIL FUMARATE. [Concomitant]
     Active Substance: TENOFOVIR DISOPROXIL FUMARATE
  9. EMTRIVA [Concomitant]
     Active Substance: EMTRICITABINE
  10. RITONAVIR. [Concomitant]
     Active Substance: RITONAVIR
  11. PRAVASTATIN. [Concomitant]
     Active Substance: PRAVASTATIN
  12. LEXIVA [Concomitant]
     Active Substance: FOSAMPRENAVIR CALCIUM

REACTIONS (2)
  - Cough [Recovering/Resolving]
  - Dyspnoea [Recovering/Resolving]
